FAERS Safety Report 13449425 (Version 3)
Quarter: 2017Q2

REPORT INFORMATION
  Report Type: Spontaneous
  Country: US (occurrence: US)
  Receive Date: 20170417
  Receipt Date: 20170615
  Transmission Date: 20170830
  Serious: Yes (Hospitalization)
  Sender: FDA-Public Use
  Company Number: US-ALLERGAN-1706867US

PATIENT
  Age: 46 Year
  Sex: Female

DRUGS (7)
  1. OMEPRAZOLE. [Concomitant]
     Active Substance: OMEPRAZOLE
     Indication: PRODUCT USED FOR UNKNOWN INDICATION
  2. BOTOX [Suspect]
     Active Substance: ONABOTULINUMTOXINA
     Indication: MIGRAINE
     Dosage: 155 UNITS, SINGLE
     Route: 030
     Dates: start: 20170123, end: 20170123
  3. TIZANIDINE. [Concomitant]
     Active Substance: TIZANIDINE
     Indication: MUSCLE SPASMS
     Route: 048
  4. HYOSCYAMINE. [Concomitant]
     Active Substance: HYOSCYAMINE
     Indication: SPHINCTER OF ODDI DYSFUNCTION
     Dosage: 0.125 MG, UNK
     Route: 060
  5. MYRBETRIQ [Concomitant]
     Active Substance: MIRABEGRON
     Indication: CONSTIPATION
     Route: 048
  6. OXYCODONE [Concomitant]
     Active Substance: OXYCODONE
     Indication: PAIN
     Dosage: 15 MG, UNK
     Route: 048
  7. GABAPENTIN. [Concomitant]
     Active Substance: GABAPENTIN
     Indication: PRODUCT USED FOR UNKNOWN INDICATION
     Route: 048

REACTIONS (28)
  - Decreased immune responsiveness [Not Recovered/Not Resolved]
  - Hypokinesia [Not Recovered/Not Resolved]
  - Dysphagia [Not Recovered/Not Resolved]
  - Eyelid ptosis [Unknown]
  - Headache [Unknown]
  - Injection site pain [Unknown]
  - Paranasal sinus discomfort [Recovering/Resolving]
  - Asthenia [Not Recovered/Not Resolved]
  - Blood pressure increased [Recovered/Resolved]
  - Urinary incontinence [Recovered/Resolved]
  - Aphonia [Recovered/Resolved]
  - Dyskinesia [Not Recovered/Not Resolved]
  - Throat tightness [Not Recovered/Not Resolved]
  - Migraine [Recovering/Resolving]
  - Dysphonia [Unknown]
  - Injection site rash [Recovering/Resolving]
  - Sinus pain [Recovering/Resolving]
  - Head discomfort [Recovering/Resolving]
  - Respiratory rate decreased [Recovered/Resolved]
  - Oesophageal achalasia [Not Recovered/Not Resolved]
  - Eye discharge [Recovered/Resolved]
  - Injection site inflammation [Unknown]
  - Heart rate decreased [Recovered/Resolved]
  - Respiratory tract infection [Not Recovered/Not Resolved]
  - Thyroid mass [Not Recovered/Not Resolved]
  - Laryngitis [Recovered/Resolved]
  - Staphylococcal infection [Not Recovered/Not Resolved]
  - Sinusitis [Unknown]

NARRATIVE: CASE EVENT DATE: 2017
